FAERS Safety Report 6809551-3 (Version None)
Quarter: 2010Q2

REPORT INFORMATION
  Report Type: 
  Country: None (occurrence: None)
  Receive Date: 20100630
  Receipt Date: 20100618
  Transmission Date: 20101027
  Serious: Yes (Other)
  Sender: FDA-Public Use
  Company Number: PHHY2010US40468

PATIENT
  Sex: Female

DRUGS (3)
  1. VALTURNA [Suspect]
     Dosage: 300/ 320 MG
     Route: 048
  2. TEKTURNA [Suspect]
     Dosage: 300
  3. LISINOPRIL [Suspect]

REACTIONS (2)
  - BLOOD PRESSURE FLUCTUATION [None]
  - DIARRHOEA [None]
